FAERS Safety Report 7270814-1 (Version None)
Quarter: 2011Q1

REPORT INFORMATION
  Report Type: 
  Country: None (occurrence: None)
  Receive Date: 20110125
  Receipt Date: 20110125
  Transmission Date: 20110831
  Serious: Yes (Life-Threatening)
  Sender: FDA-Public Use
  Company Number: None

PATIENT
  Age: 56 Year
  Sex: Male
  Weight: 95 kg

DRUGS (1)
  1. SUCCINYLCHOLINE [Suspect]
     Indication: SURGERY
     Dosage: 100 MG ONCE IV
     Route: 042
     Dates: start: 20101230, end: 20101230

REACTIONS (2)
  - UPPER AIRWAY OBSTRUCTION [None]
  - ANAPHYLACTIC REACTION [None]
